FAERS Safety Report 9233982 (Version 1)
Quarter: 2013Q2

REPORT INFORMATION
  Report Type: Spontaneous
  Country: US (occurrence: US)
  Receive Date: 20130416
  Receipt Date: 20130416
  Transmission Date: 20140414
  Serious: No
  Sender: FDA-Public Use
  Company Number: US-BANPHARM-20130552

PATIENT
  Age: 73 Year
  Sex: Male

DRUGS (1)
  1. NAPROXEN SODIUM 220MG [Suspect]
     Indication: ARTHRALGIA
     Dosage: 1-2 DF, PRN,
     Route: 048
     Dates: start: 201301, end: 201301

REACTIONS (2)
  - Abdominal discomfort [Recovered/Resolved]
  - Drug ineffective [Recovered/Resolved]
